FAERS Safety Report 4646212-3 (Version None)
Quarter: 2005Q2

REPORT INFORMATION
  Report Type: 
  Country: None (occurrence: None)
  Receive Date: 20050427
  Receipt Date: 20041028
  Transmission Date: 20051028
  Serious: Yes (Other)
  Sender: FDA-Public Use
  Company Number: US-GLAXOSMITHKLINE-A0531706A

PATIENT
  Age: 30 Year
  Sex: Female
  Weight: 88.6 kg

DRUGS (1)
  1. AQUAFRESH EXTREME CLEAN WHITENING TOOTHPASTE [Suspect]
     Indication: DENTAL CARE
     Dates: start: 20041028, end: 20041028

REACTIONS (11)
  - DYSPNOEA [None]
  - EYE SWELLING [None]
  - HYPERSENSITIVITY [None]
  - LOCAL SWELLING [None]
  - ODYNOPHAGIA [None]
  - PRURITUS [None]
  - SENSATION OF FOREIGN BODY [None]
  - SWELLING FACE [None]
  - SWOLLEN TONGUE [None]
  - THROAT TIGHTNESS [None]
  - WHEEZING [None]
